FAERS Safety Report 26043557 (Version 1)
Quarter: 2025Q4

REPORT INFORMATION
  Report Type: Spontaneous
  Country: US (occurrence: US)
  Receive Date: 20251113
  Receipt Date: 20251113
  Transmission Date: 20260117
  Serious: Yes (Hospitalization, Other)
  Sender: Kenvue
  Company Number: None

PATIENT
  Age: 5 Year
  Sex: Female

DRUGS (1)
  1. ACETAMINOPHEN [Suspect]
     Active Substance: ACETAMINOPHEN
     Indication: Accidental exposure to product
     Dosage: UNKNOWN QUANTITY, ADULT FORMULATION, UNSPECIFIED STRENGTH
     Route: 048

REACTIONS (5)
  - Acute hepatic failure [Recovering/Resolving]
  - Hypoglycaemia [Recovering/Resolving]
  - Coagulopathy [Recovering/Resolving]
  - Brain oedema [Recovering/Resolving]
  - Accidental overdose [Unknown]
